FAERS Safety Report 24097955 (Version 3)
Quarter: 2024Q4

REPORT INFORMATION
  Report Type: Spontaneous
  Country: FR (occurrence: FR)
  Receive Date: 20240716
  Receipt Date: 20241004
  Transmission Date: 20250115
  Serious: Yes (Hospitalization, Other)
  Sender: BRISTOL MYERS SQUIBB
  Company Number: FR-ROCHE-10000013836

PATIENT
  Age: 63 Year
  Sex: Female
  Weight: 78 kg

DRUGS (7)
  1. PACLITAXEL [Suspect]
     Active Substance: PACLITAXEL
     Indication: Triple negative breast cancer
     Dosage: ON 14/JUN/2024 RECEIVED MOST RECENT DOSE 194 MG PRIOR AE
     Route: 042
     Dates: start: 20240405, end: 20240614
  2. TIRAGOLUMAB [Suspect]
     Active Substance: TIRAGOLUMAB
     Indication: Triple negative breast cancer
     Dosage: ON 31/MAY/2024 RECEIVED MOST RECENT DOSE 840 MG PRIOR AE
     Route: 042
     Dates: start: 20240405, end: 20240531
  3. TIRAGOLUMAB [Suspect]
     Active Substance: TIRAGOLUMAB
     Dosage: ON 31/MAY/2024, 18/JUL/2024 RECEIVED MOST RECENT DOSE 840 MG PRIOR AE
     Route: 042
     Dates: start: 20240718
  4. ATEZOLIZUMAB [Suspect]
     Active Substance: ATEZOLIZUMAB
     Indication: Triple negative breast cancer
     Dosage: ON 31/MAY/2024 RECEIVED MOST RECENT DOSE 1680 MG. PRIOR AE. CYCLE 4 DAY 1.
     Route: 042
     Dates: start: 20240405, end: 20240531
  5. ATEZOLIZUMAB [Suspect]
     Active Substance: ATEZOLIZUMAB
     Dosage: ON 31/MAY/2024, 18/JUL/2024 RECEIVED MOST RECENT DOSE 1680 MG. PRIOR AE. CYCLE 4 DAY 1
     Route: 042
     Dates: start: 20240718
  6. AMLODIPINE BESYLATE [Concomitant]
     Active Substance: AMLODIPINE BESYLATE
     Indication: Product used for unknown indication
     Route: 048
  7. RAMIPRIL [Concomitant]
     Active Substance: RAMIPRIL
     Indication: Product used for unknown indication

REACTIONS (2)
  - Myocarditis [Not Recovered/Not Resolved]
  - Troponin increased [Recovered/Resolved]

NARRATIVE: CASE EVENT DATE: 20240627
